FAERS Safety Report 6285543-0 (Version None)
Quarter: 2009Q3

REPORT INFORMATION
  Report Type: 
  Country: None (occurrence: None)
  Receive Date: 20090716
  Receipt Date: 20081128
  Transmission Date: 20100115
  Serious: Yes (Other)
  Sender: FDA-Public Use
  Company Number: 2008BI028552

PATIENT
  Sex: Male
  Weight: 62.5964 kg

DRUGS (7)
  1. AVONEX [Suspect]
     Indication: MULTIPLE SCLEROSIS
     Dosage: 30 UG
     Dates: start: 20071220, end: 20080101
  2. CLONAZEPAM [Concomitant]
  3. VITAMIN B COMPLEX CAP [Concomitant]
  4. VITAMIN B-12 [Concomitant]
  5. COPAXONE [Concomitant]
  6. NOVANTRONE [Concomitant]
  7. FUMARIC ACID [Concomitant]

REACTIONS (3)
  - CONVULSION [None]
  - INFLUENZA LIKE ILLNESS [None]
  - UPPER RESPIRATORY TRACT INFECTION [None]
